FAERS Safety Report 18398084 (Version 1)
Quarter: 2020Q4

REPORT INFORMATION
  Report Type: Spontaneous
  Country: US (occurrence: US)
  Receive Date: 20201019
  Receipt Date: 20201019
  Transmission Date: 20210114
  Serious: No
  Sender: FDA-Public Use
  Company Number: None

PATIENT
  Sex: Female

DRUGS (19)
  1. FOLIC ACID. [Concomitant]
     Active Substance: FOLIC ACID
  2. LEUCOVOR CA [Concomitant]
  3. OMEPRAZOLE. [Concomitant]
     Active Substance: OMEPRAZOLE
  4. VITAMIN E [Concomitant]
     Active Substance: .ALPHA.-TOCOPHEROL
  5. PROTOPIC OIN [Concomitant]
  6. ASPIRIN CHLD [Concomitant]
  7. NITROSTAT [Concomitant]
     Active Substance: NITROGLYCERIN
  8. PREDNISONE. [Concomitant]
     Active Substance: PREDNISONE
  9. RESTASIS MUL EMU [Concomitant]
  10. TOPROL XL [Concomitant]
     Active Substance: METOPROLOL SUCCINATE
  11. XELJANZ [Concomitant]
     Active Substance: TOFACITINIB CITRATE
  12. ATROVASTATIN [Concomitant]
     Active Substance: ATORVASTATIN CALCIUM
  13. LEVOTHYROXIN [Concomitant]
     Active Substance: LEVOTHYROXINE
  14. VITAMIN D [Concomitant]
     Active Substance: VITAMIN D NOS
  15. FORTEO [Suspect]
     Active Substance: TERIPARATIDE
     Indication: OSTEOPOROSIS
     Dosage: ?          OTHER STRENGTH:600 MCG/2.4 ML;?
     Route: 058
     Dates: start: 20190202
  16. TYLENOL [Concomitant]
     Active Substance: ACETAMINOPHEN
  17. FISH OIL [Concomitant]
     Active Substance: FISH OIL
  18. METHOTREATE [Concomitant]
  19. MULTIPLE VIT [Concomitant]

REACTIONS (2)
  - Lower limb fracture [None]
  - Therapy interrupted [None]
